FAERS Safety Report 9189325 (Version 1)
Quarter: 2013Q1

REPORT INFORMATION
  Report Type: Spontaneous
  Country: FR (occurrence: FR)
  Receive Date: 20130326
  Receipt Date: 20130326
  Transmission Date: 20140127
  Serious: Yes (Other)
  Sender: FDA-Public Use
  Company Number: FR-JNJFOC-20130313910

PATIENT
  Age: 68 Year
  Sex: Female

DRUGS (3)
  1. XARELTO [Suspect]
     Indication: DEEP VEIN THROMBOSIS
     Route: 048
     Dates: start: 20121227, end: 20130124
  2. XARELTO [Suspect]
     Indication: DEEP VEIN THROMBOSIS
     Route: 048
     Dates: start: 20121107, end: 201212
  3. PREVISCAN (FLUINDIONE) [Concomitant]
     Route: 065
     Dates: start: 20130124

REACTIONS (2)
  - Conjunctival haemorrhage [Recovered/Resolved]
  - Dry mouth [Unknown]
